FAERS Safety Report 19505629 (Version 3)
Quarter: 2021Q3

REPORT INFORMATION
  Report Type: Spontaneous
  Country: JP (occurrence: JP)
  Receive Date: 20210707
  Receipt Date: 20210819
  Transmission Date: 20211014
  Serious: Yes (Death, Hospitalization, Other)
  Sender: FDA-Public Use
  Company Number: JP-SUN PHARMACEUTICAL INDUSTRIES LTD-2021R1-303161

PATIENT
  Age: 57 Year
  Sex: Female

DRUGS (4)
  1. NAB?PACLITAXEL [Suspect]
     Active Substance: PACLITAXEL
     Indication: ADENOCARCINOMA PANCREAS
     Dosage: 125 MG/SQ.M
     Route: 042
  2. GEMCITABINE. [Suspect]
     Active Substance: GEMCITABINE
     Indication: ADENOCARCINOMA PANCREAS
  3. GEMCITABINE. [Suspect]
     Active Substance: GEMCITABINE
     Indication: METASTASES TO MENINGES
     Dosage: 1000 MG/SQ.M EVERY EVERY 4 WEEKS
     Route: 042
  4. NAB?PACLITAXEL [Suspect]
     Active Substance: PACLITAXEL
     Indication: METASTASES TO MENINGES

REACTIONS (2)
  - Neutropenia [Unknown]
  - Disease progression [Fatal]
